FAERS Safety Report 4615399-0 (Version None)
Quarter: 2005Q1

REPORT INFORMATION
  Report Type: 
  Country: None (occurrence: None)
  Receive Date: 20050317
  Receipt Date: 20041203
  Transmission Date: 20050727
  Serious: Yes (Hospitalization)
  Sender: FDA-Public Use
  Company Number: 2004238132US

PATIENT
  Age: 44 Year
  Sex: Female
  Weight: 163.2949 kg

DRUGS (7)
  1. BEXTRA [Suspect]
     Indication: ARTHRITIS
     Dosage: 10 MG (10 MG, 1 IN 1 D)
     Dates: start: 20041004, end: 20041010
  2. METAXALONE [Suspect]
     Indication: SCIATICA
     Dosage: 1600 MG (800 MG, 2 IN 1 D)
  3. PARACEMATOL (PARACEMATOL) [Suspect]
     Indication: ARTHRITIS
     Dosage: AS NECESSARY
     Dates: end: 20041010
  4. ATENOLOL [Concomitant]
  5. WARFARIN SODIUM [Concomitant]
  6. PYRIDOXINE HCL [Concomitant]
  7. ALPRAZOLAM [Concomitant]

REACTIONS (1)
  - HEART RATE INCREASED [None]
